FAERS Safety Report 15621975 (Version 1)
Quarter: 2018Q4

REPORT INFORMATION
  Report Type: Spontaneous
  Country: GB (occurrence: GB)
  Receive Date: 20181115
  Receipt Date: 20181115
  Transmission Date: 20190205
  Serious: Yes (Other)
  Sender: FDA-Public Use
  Company Number: GB-PFIZER INC-2018464545

PATIENT
  Age: 36 Year
  Sex: Male

DRUGS (1)
  1. VIAGRA [Suspect]
     Active Substance: SILDENAFIL CITRATE
     Indication: ERECTILE DYSFUNCTION
     Dosage: UNK

REACTIONS (5)
  - Drug resistance [Unknown]
  - Intentional product misuse [Unknown]
  - Drug dependence [Unknown]
  - Prescription drug used without a prescription [Unknown]
  - Disturbance in sexual arousal [Unknown]
